FAERS Safety Report 4402948-0 (Version None)
Quarter: 2004Q3

REPORT INFORMATION
  Report Type: 
  Country: None (occurrence: None)
  Receive Date: 20040721
  Receipt Date: 20030708
  Transmission Date: 20050211
  Serious: No
  Sender: FDA-Public Use
  Company Number: US-GLAXOSMITHKLINE-A0415783A

PATIENT
  Age: 40 Year
  Sex: Female

DRUGS (2)
  1. IMITREX [Suspect]
     Indication: MIGRAINE
     Dosage: 50MG UNKNOWN
     Route: 048
     Dates: start: 20030301
  2. BIRTH CONTROL [Concomitant]
     Route: 048

REACTIONS (2)
  - LETHARGY [None]
  - PHARMACEUTICAL PRODUCT COMPLAINT [None]
